FAERS Safety Report 13665902 (Version 1)
Quarter: 2017Q2

REPORT INFORMATION
  Report Type: Report from Study
  Country: US (occurrence: BR)
  Receive Date: 20170619
  Receipt Date: 20170619
  Transmission Date: 20170830
  Serious: Yes (Life-Threatening)
  Sender: FDA-Public Use
  Company Number: US-SUNOVION-2017SUN002613

PATIENT
  Sex: Female
  Weight: 65 kg

DRUGS (2)
  1. INDACATEROL AND GLYCOPYRROLATE [Suspect]
     Active Substance: GLYCOPYRROLATE\INDACATEROL MALEATE
     Indication: CHRONIC OBSTRUCTIVE PULMONARY DISEASE
  2. INDACATEROL AND GLYCOPYRROLATE [Suspect]
     Active Substance: GLYCOPYRROLATE\INDACATEROL MALEATE
     Indication: EMPHYSEMA
     Dosage: GLYCOPYRRONIUM 50 UG/INDACATEROL 110 UG
     Route: 055

REACTIONS (5)
  - Feeling abnormal [Unknown]
  - Viral upper respiratory tract infection [Unknown]
  - Cough [Unknown]
  - Dyspnoea [Recovering/Resolving]
  - Drug prescribing error [Unknown]
